FAERS Safety Report 9299504 (Version 2)
Quarter: 2013Q2

REPORT INFORMATION
  Report Type: Spontaneous
  Country: FI (occurrence: FI)
  Receive Date: 20130521
  Receipt Date: 20130610
  Transmission Date: 20140414
  Serious: Yes (Hospitalization, Other)
  Sender: FDA-Public Use
  Company Number: FI-ROCHE-1226583

PATIENT
  Sex: Female

DRUGS (3)
  1. AVASTIN [Suspect]
     Indication: OVARIAN CANCER
     Dosage: MOST RECENT DOSE:04/APR/2013
     Route: 065
     Dates: start: 20120803
  2. CARBOPLATIN [Concomitant]
     Indication: OVARIAN CANCER
     Route: 065
     Dates: end: 20121129
  3. PACLITAXEL [Concomitant]
     Indication: OVARIAN CANCER
     Route: 065
     Dates: end: 20121129

REACTIONS (3)
  - Bacterial infection [Unknown]
  - Bone marrow disorder [Unknown]
  - Metastases to bone marrow [Unknown]
